FAERS Safety Report 13901841 (Version 1)
Quarter: 2017Q3

REPORT INFORMATION
  Report Type: Spontaneous
  Country: US (occurrence: US)
  Receive Date: 20170824
  Receipt Date: 20170824
  Transmission Date: 20171127
  Serious: No
  Sender: FDA-Public Use
  Company Number: US-ROCHE-1029468

PATIENT
  Age: 54 Year
  Sex: Female

DRUGS (3)
  1. HERCEPTIN [Suspect]
     Active Substance: TRASTUZUMAB
     Indication: BREAST CANCER
     Route: 042
  2. CHEMOTHERAPY TREATMENTS NOS [Suspect]
     Active Substance: UNSPECIFIED INGREDIENT
     Indication: BREAST CANCER
  3. FEMARA [Suspect]
     Active Substance: LETROZOLE
     Indication: BREAST CANCER

REACTIONS (10)
  - Haemoglobin decreased [Recovering/Resolving]
  - Mental disorder [Recovering/Resolving]
  - Amnesia [Recovering/Resolving]
  - Hypertension [Not Recovered/Not Resolved]
  - White blood cell count decreased [Recovering/Resolving]
  - Chills [Not Recovered/Not Resolved]
  - Influenza like illness [Not Recovered/Not Resolved]
  - Bedridden [None]
  - Renal disorder [None]
  - Malaise [None]
